FAERS Safety Report 7130686-2 (Version None)
Quarter: 2010Q4

REPORT INFORMATION
  Report Type: 
  Country: None (occurrence: None)
  Receive Date: 20101201
  Receipt Date: 20101125
  Transmission Date: 20110411
  Serious: Yes (Death, Hospitalization)
  Sender: FDA-Public Use
  Company Number: GB-CELGENEUS-167-21880-10102964

PATIENT
  Sex: Female
  Weight: 68 kg

DRUGS (5)
  1. REVLIMID [Suspect]
     Indication: MULTIPLE MYELOMA
     Route: 048
     Dates: start: 20100324
  2. REVLIMID [Suspect]
     Route: 048
     Dates: start: 20100811, end: 20100831
  3. DEXAMETHASONE [Suspect]
     Indication: MULTIPLE MYELOMA
     Route: 048
     Dates: start: 20100324
  4. DEXAMETHASONE [Suspect]
     Route: 048
     Dates: start: 20100811, end: 20100831
  5. LMWH [Concomitant]
     Route: 065

REACTIONS (2)
  - BRONCHOPNEUMONIA [None]
  - NEUTROPENIA [None]
